FAERS Safety Report 5418860-4 (Version None)
Quarter: 2007Q3

REPORT INFORMATION
  Report Type: 
  Country: None (occurrence: None)
  Receive Date: 20070718
  Receipt Date: 20060717
  Transmission Date: 20080115
  Serious: Yes (Hospitalization)
  Sender: FDA-Public Use
  Company Number: 2006090778

PATIENT
  Age: 69 Year
  Sex: Female
  Weight: 84.369 kg

DRUGS (5)
  1. CELEBREX [Suspect]
     Indication: ARTHRITIS
     Dosage: 200 MG (200 MG, 1 IN 1 D)
     Dates: start: 20020928, end: 20040806
  2. PRILOSEC [Concomitant]
  3. TOPROL-XL [Concomitant]
  4. MEVACO(LOVASTATIN) [Concomitant]
  5. LOPID [Concomitant]

REACTIONS (1)
  - CEREBROVASCULAR ACCIDENT [None]
